FAERS Safety Report 6301688-0 (Version None)
Quarter: 2009Q3

REPORT INFORMATION
  Report Type: 
  Country: None (occurrence: None)
  Receive Date: 20090807
  Receipt Date: 20090805
  Transmission Date: 20100115
  Serious: Yes (Death, Hospitalization)
  Sender: FDA-Public Use
  Company Number: PHHY2009BR32894

PATIENT
  Sex: Male

DRUGS (6)
  1. DIOVAN [Suspect]
     Indication: HYPERTENSION
     Dosage: 2 DF (1 TABLET IN THE MORNING AND 1 TABLET AT NIGHT)
     Route: 048
     Dates: start: 19990101
  2. MONOCORDIL [Concomitant]
     Indication: CARDIAC DISORDER
     Dosage: 2 DF (20 MG) TABLETS DAILY
     Route: 048
  3. NATRILIX [Concomitant]
     Indication: HYPERTENSION
     Dosage: 1 DF DAILY
     Route: 048
  4. ACETYLSALICYLIC ACID [Concomitant]
     Indication: CARDIOVASCULAR DISORDER
     Dosage: 2 TABLETS DAILY
     Route: 048
  5. DILACORON [Concomitant]
     Indication: CARDIAC DISORDER
     Dosage: 1 TABLET DAILY
     Route: 048
  6. ANCORON [Concomitant]
     Indication: ARRHYTHMIA
     Dosage: 1 TABLET DAILY
     Route: 048

REACTIONS (3)
  - ACUTE CORONARY SYNDROME [None]
  - CHEST PAIN [None]
  - SHOCK [None]
